FAERS Safety Report 8221601 (Version 3)
Quarter: 2012Q4

REPORT INFORMATION
  Report Type: 
  Country: US (occurrence: US)
  Receive Date: 20111102
  Receipt Date: 20120928
  Transmission Date: 20130627
  Serious: Yes (Hospitalization)
  Sender: FDA-Public Use
  Company Number: US-ASTRAZENECA-2011SE43107

PATIENT
  Age: 22886 Day
  Sex: Male
  Weight: 68 kg

DRUGS (9)
  1. CAPRELSA [Suspect]
     Indication: THYROID CANCER
     Route: 048
     Dates: start: 20110701
  2. CAPRELSA [Suspect]
     Indication: THYROID CANCER
     Route: 048
  3. LOPERAMIDE HCL [Concomitant]
     Route: 048
  4. DIOVAN [Concomitant]
     Route: 048
  5. LEVOXYL [Concomitant]
     Dosage: 150 ug cont
     Route: 048
  6. NEURONTIN [Concomitant]
     Route: 048
  7. IMODIUM [Concomitant]
  8. LEVOTHYROID [Concomitant]
  9. GLAUCOMA MEDICATION [Concomitant]

REACTIONS (9)
  - Hypertension [Recovered/Resolved]
  - Cough [Not Recovered/Not Resolved]
  - Hypoaesthesia [Recovered/Resolved]
  - Blood pressure increased [Unknown]
  - Skin exfoliation [Not Recovered/Not Resolved]
  - Weight decreased [Not Recovered/Not Resolved]
  - Diarrhoea [Unknown]
  - Fatigue [Unknown]
  - Nausea [Unknown]
